FAERS Safety Report 7199239-4 (Version None)
Quarter: 2010Q4

REPORT INFORMATION
  Report Type: 
  Country: None (occurrence: None)
  Receive Date: 20101228
  Receipt Date: 20101209
  Transmission Date: 20110411
  Serious: Yes (Other)
  Sender: FDA-Public Use
  Company Number: JP-PFIZER INC-2010116397

PATIENT
  Age: 6 Year
  Sex: Female
  Weight: 13 kg

DRUGS (5)
  1. SOLU-MEDROL [Suspect]
     Indication: WEBER-CHRISTIAN DISEASE
     Dosage: 375 MG, UNK
     Route: 041
     Dates: start: 20090410, end: 20090411
  2. ALFAROL [Concomitant]
     Indication: OSTEOPOROSIS
     Dosage: 0.2 UG, 1X/DAY
     Route: 048
     Dates: start: 20080328
  3. GASTER [Concomitant]
     Indication: GASTRITIS PROPHYLAXIS
     Dosage: 7.5 MG, 2X/DAY
     Route: 048
     Dates: start: 20070206, end: 20091028
  4. PREDNISOLONE [Concomitant]
     Indication: WEBER-CHRISTIAN DISEASE
     Dosage: 0.4 MG/KG DAILY
     Route: 048
  5. PREDNISOLONE [Concomitant]
     Dosage: 2.5 MG, 2X/DAY
     Route: 048
     Dates: start: 20060516, end: 20091028

REACTIONS (2)
  - AGITATION [None]
  - HYPOTHERMIA [None]
